FAERS Safety Report 17174405 (Version 1)
Quarter: 2019Q4

REPORT INFORMATION
  Report Type: Spontaneous
  Country: GR (occurrence: GR)
  Receive Date: 20191219
  Receipt Date: 20191219
  Transmission Date: 20200122
  Serious: Yes (Other)
  Sender: FDA-Public Use
  Company Number: GR-009507513-1912GRC008132

PATIENT
  Sex: Male
  Weight: 81 kg

DRUGS (6)
  1. ATORVASTATIN [Suspect]
     Active Substance: ATORVASTATIN
     Indication: CORONARY ARTERY DISEASE
     Dosage: 10 MILLIGRAM
     Route: 048
     Dates: start: 20030301, end: 20040601
  2. METOPROLOL. [Concomitant]
     Active Substance: METOPROLOL
     Indication: CORONARY ARTERY DISEASE
     Dosage: 50 MILLIGRAM
     Route: 048
     Dates: start: 20021212, end: 20191127
  3. ROSUVASTATIN. [Suspect]
     Active Substance: ROSUVASTATIN
     Indication: CORONARY ARTERY DISEASE
     Dosage: 10 MILLIGRAM
     Route: 048
     Dates: start: 20080301, end: 20170301
  4. SIMVASTATIN. [Suspect]
     Active Substance: SIMVASTATIN
     Indication: CORONARY ARTERY DISEASE
     Dosage: 20 MILLIGRAM
     Route: 048
     Dates: start: 20040620, end: 20050901
  5. EZETIMIBE AND SIMVASTATIN [Suspect]
     Active Substance: EZETIMIBE\SIMVASTATIN
     Indication: CORONARY ARTERY DISEASE
     Dosage: 1 DOSAGE FORM (10/10 MG)
     Route: 048
     Dates: start: 20080101, end: 20080401
  6. SALOSPIR [Concomitant]
     Active Substance: ASPIRIN
     Indication: CORONARY ARTERY DISEASE
     Dosage: 100 MILLIGRAM
     Route: 048
     Dates: start: 20021212, end: 20191127

REACTIONS (4)
  - Coeliac disease [Recovered/Resolved]
  - Coeliac disease [Recovered/Resolved]
  - Coeliac disease [Recovered/Resolved]
  - Coeliac disease [Recovered/Resolved]

NARRATIVE: CASE EVENT DATE: 20030301
